FAERS Safety Report 10572309 (Version 1)
Quarter: 2014Q4

REPORT INFORMATION
  Report Type: Spontaneous
  Country: SE (occurrence: SE)
  Receive Date: 20141109
  Receipt Date: 20141109
  Transmission Date: 20150529
  Serious: Yes (Hospitalization)
  Sender: FDA-Public Use
  Company Number: SE-PFIZER INC-2014305985

PATIENT
  Age: 54 Year
  Sex: Female

DRUGS (4)
  1. ORUDIS [Concomitant]
     Active Substance: KETOPROFEN
  2. SALAZOPYRIN [Suspect]
     Active Substance: SULFASALAZINE
     Dates: start: 201409, end: 201410
  3. ACICLOVIR [Concomitant]
     Active Substance: ACYCLOVIR
  4. OMEPRAZOLE. [Concomitant]
     Active Substance: OMEPRAZOLE

REACTIONS (5)
  - Malaise [Recovering/Resolving]
  - Fatigue [Recovering/Resolving]
  - Pyrexia [Recovering/Resolving]
  - Nausea [Recovering/Resolving]
  - Abdominal pain [Recovering/Resolving]

NARRATIVE: CASE EVENT DATE: 201410
